FAERS Safety Report 5257228-0 (Version None)
Quarter: 2007Q1

REPORT INFORMATION
  Report Type: 
  Country: None (occurrence: None)
  Receive Date: 20070302
  Receipt Date: 20060210
  Transmission Date: 20070707
  Serious: Yes (Hospitalization)
  Sender: FDA-Public Use
  Company Number: 9039997-2007-00034

PATIENT

DRUGS (3)
  1. 5-AMINOLEVULINIC ACID [Suspect]
     Indication: BARRETT'S OESOPHAGUS
     Dosage: 30 MG/KG, ONCE, ORAL
     Route: 048
  2. 5-AMINOLEVULINIC ACID [Suspect]
     Indication: OESOPHAGEAL ADENOCARCINOMA
     Dosage: 30 MG/KG, ONCE, ORAL
     Route: 048
  3. ESOMEPRAZOLE MAGNESIUM [Concomitant]

REACTIONS (1)
  - CHEST PAIN [None]
